FAERS Safety Report 5158392-4 (Version None)
Quarter: 2006Q4

REPORT INFORMATION
  Report Type: 
  Country: None (occurrence: None)
  Receive Date: 20061128
  Receipt Date: 20060913
  Transmission Date: 20070319
  Serious: Yes (Death, Hospitalization, Other)
  Sender: FDA-Public Use
  Company Number: DE-BAYER-200611215BVD

PATIENT
  Age: 75 Year
  Sex: Male
  Weight: 77 kg

DRUGS (16)
  1. SORAFENIB OR PLACEBO [Suspect]
     Indication: NON-SMALL CELL LUNG CANCER
     Dosage: TOTAL DAILY DOSE: 800 MG  UNIT DOSE: 400 MG
     Route: 048
     Dates: start: 20060830, end: 20060910
  2. SORAFENIB OR PLACEBO [Suspect]
     Route: 048
     Dates: start: 20060911
  3. PACLITAXEL [Suspect]
     Indication: NON-SMALL CELL LUNG CANCER
     Route: 042
     Dates: start: 20060829, end: 20060829
  4. CARBOPLATIN [Suspect]
     Indication: NON-SMALL CELL LUNG CANCER
     Route: 042
     Dates: start: 20060829, end: 20060829
  5. METOPROLOL [Concomitant]
     Route: 048
     Dates: end: 20060910
  6. VALSARTAN [Concomitant]
     Route: 048
  7. METFORMIN HCL [Concomitant]
     Route: 048
  8. ASPIRIN [Concomitant]
     Route: 048
     Dates: end: 20060910
  9. MIRTAZAPINE [Concomitant]
     Route: 048
  10. ZOLPIDEM TARTRATE [Concomitant]
     Route: 048
     Dates: end: 20060910
  11. METOCLOPRAMIDE [Concomitant]
     Route: 048
     Dates: start: 20060906
  12. PARACODIN BITARTRATE TAB [Concomitant]
     Route: 048
  13. STANGYL [Concomitant]
     Route: 048
  14. MYKUNDEX [Concomitant]
     Route: 048
     Dates: start: 20060905
  15. DICODID [Concomitant]
     Route: 048
  16. FLUNITRAZEPAM [Concomitant]
     Route: 048
     Dates: start: 20060912

REACTIONS (9)
  - ASTHENIA [None]
  - FATIGUE [None]
  - GASTRODUODENITIS [None]
  - GENERAL PHYSICAL HEALTH DETERIORATION [None]
  - OESOPHAGEAL CANDIDIASIS [None]
  - PNEUMONIA [None]
  - RASH [None]
  - RESPIRATORY FAILURE [None]
  - SOCIAL PROBLEM [None]
